FAERS Safety Report 5774800-X (Version None)
Quarter: 2008Q2

REPORT INFORMATION
  Report Type: 
  Country: None (occurrence: None)
  Receive Date: 20080616
  Receipt Date: 20080616
  Transmission Date: 20081010
  Serious: Yes (Disabling)
  Sender: FDA-Public Use
  Company Number: None

PATIENT
  Sex: Female
  Weight: 113.3993 kg

DRUGS (1)
  1. REI MULTI LEVEL PROTECTION SUNBLOCK [Suspect]
     Indication: PROPHYLAXIS AGAINST SOLAR RADIATION
     Dosage: 1/2 TSP. ONE TIME 9/27/07
     Dates: start: 20070927

REACTIONS (5)
  - BLISTER [None]
  - ERYTHEMA [None]
  - PAIN OF SKIN [None]
  - SKIN EXFOLIATION [None]
  - SKIN TIGHTNESS [None]
